FAERS Safety Report 21621958 (Version 2)
Quarter: 2023Q1

REPORT INFORMATION
  Report Type: Spontaneous
  Country: MA (occurrence: MA)
  Receive Date: 20221121
  Receipt Date: 20230206
  Transmission Date: 20230417
  Serious: No
  Sender: FDA-Public Use
  Company Number: MA-PFIZER INC-PV202200104855

PATIENT
  Age: 11 Year
  Sex: Female

DRUGS (1)
  1. GENOTROPIN [Suspect]
     Active Substance: SOMATROPIN
     Dosage: 0.9 MG, DAILY (0.9 MG /EVERYDAY)
     Route: 058

REACTIONS (2)
  - Device occlusion [Recovering/Resolving]
  - Device issue [Recovering/Resolving]

NARRATIVE: CASE EVENT DATE: 20221001
